FAERS Safety Report 11971838 (Version 4)
Quarter: 2019Q4

REPORT INFORMATION
  Report Type: Spontaneous
  Country: US (occurrence: US)
  Receive Date: 20160128
  Receipt Date: 20191021
  Transmission Date: 20200122
  Serious: Yes (Other)
  Sender: FDA-Public Use
  Company Number: US-PFIZER INC-2016045587

PATIENT
  Age: 43 Year
  Sex: Male

DRUGS (3)
  1. VIAGRA [Suspect]
     Active Substance: SILDENAFIL CITRATE
     Indication: ERECTILE DYSFUNCTION
     Dosage: 50 MG, 2X/WEEK
     Route: 048
     Dates: start: 20110829, end: 20130828
  2. MUCINEX [Concomitant]
     Active Substance: GUAIFENESIN
     Indication: NASAL CONGESTION
     Dosage: UNK UNK, AS NEEDED
     Dates: start: 2010
  3. VIAGRA [Suspect]
     Active Substance: SILDENAFIL CITRATE
     Dosage: 50 MG, 2X/WEEK
     Route: 048
     Dates: start: 20110829, end: 20130829

REACTIONS (4)
  - Malignant melanoma [Unknown]
  - Depression [Unknown]
  - Aortic aneurysm [Unknown]
  - Anxiety [Unknown]

NARRATIVE: CASE EVENT DATE: 2011
